FAERS Safety Report 13158362 (Version 4)
Quarter: 2017Q1

REPORT INFORMATION
  Report Type: Spontaneous
  Country: SK (occurrence: SK)
  Receive Date: 20170127
  Receipt Date: 20170329
  Transmission Date: 20170428
  Serious: Yes (Hospitalization, Other)
  Sender: FDA-Public Use
  Company Number: SK-ELI_LILLY_AND_COMPANY-SK201701008101

PATIENT
  Age: 53 Year
  Sex: Male

DRUGS (2)
  1. ZYPADHERA [Suspect]
     Active Substance: OLANZAPINE PAMOATE
     Indication: SCHIZOPHRENIA
     Dosage: 405 MG, UNKNOWN
     Route: 065
     Dates: start: 201107, end: 20161220
  2. DEPAKINE                           /00228502/ [Concomitant]
     Active Substance: VALPROATE SODIUM
     Dosage: 1000 MG, BID
     Route: 065

REACTIONS (10)
  - Disorientation [Recovered/Resolved]
  - Restlessness [Recovered/Resolved]
  - Tachycardia [Recovered/Resolved]
  - Sedation [Recovered/Resolved]
  - Hyperbilirubinaemia [Unknown]
  - Blood creatinine increased [Unknown]
  - Gastritis viral [Unknown]
  - Disturbance in attention [Recovered/Resolved]
  - Asthenia [Recovered/Resolved]
  - Blood glucose increased [Unknown]

NARRATIVE: CASE EVENT DATE: 201601
